FAERS Safety Report 8791187 (Version 1)
Quarter: 2012Q4

REPORT INFORMATION
  Report Type: Spontaneous
  Country: US (occurrence: None)
  Receive Date: 20120914
  Receipt Date: 20120914
  Transmission Date: 20130627
  Serious: Yes (Hospitalization)
  Sender: FDA-Public Use
  Company Number: None

PATIENT
  Age: 65 Year
  Sex: Female
  Weight: 54.6 kg

DRUGS (14)
  1. PLAVIX [Suspect]
     Indication: PERIPHERAL VASCULAR DISORDER
     Dosage: Chronic
     Route: 048
  2. ASA [Suspect]
     Indication: PERIPHERAL VASCULAR DISORDER
     Route: 048
  3. DILANTIN [Concomitant]
  4. AMITRIPTYLINE [Concomitant]
  5. NEURONTIN [Concomitant]
  6. PROZAC [Concomitant]
  7. LOVASTATIN [Concomitant]
  8. ZENPOT [Concomitant]
  9. AMLODIPINE [Concomitant]
  10. VESICARE [Concomitant]
  11. BENADRYL [Concomitant]
  12. SINGULAIR [Concomitant]
  13. KCL [Concomitant]
  14. OMEPRAZ [Concomitant]

REACTIONS (3)
  - Subarachnoid haemorrhage [None]
  - Fall [None]
  - Laceration [None]
